FAERS Safety Report 7426331 (Version 3)
Quarter: 2014Q1

REPORT INFORMATION
  Report Type: Spontaneous
  Country: US (occurrence: US)
  Receive Date: 20100621
  Receipt Date: 20140212
  Transmission Date: 20141002
  Serious: Yes (Hospitalization)
  Sender: FDA-Public Use
  Company Number: US-B.I. PHARMACEUTICALS,INC./RIDGEFIELD-2010-BP-06840BP

PATIENT
  Age: 74 Year
  Sex: Female
  Weight: 83.64 kg

DRUGS (11)
  1. SPIRIVA HANDIHALER [Suspect]
     Indication: CHRONIC OBSTRUCTIVE PULMONARY DISEASE
     Dosage: 18 MCG
     Route: 055
     Dates: start: 2005
  2. SPIRIVA HANDIHALER [Suspect]
     Indication: EMPHYSEMA
  3. SPIRIVA HANDIHALER [Suspect]
     Indication: BRONCHITIS CHRONIC
  4. ZOCOR [Concomitant]
  5. LASIX [Concomitant]
  6. LISINOPRIL [Concomitant]
     Dosage: 10 MG
  7. FOSAMAX [Concomitant]
  8. SPIRONOLACTONE [Concomitant]
  9. METOPROLOL [Concomitant]
     Dosage: 50 MG
  10. OMEGA 3 [Concomitant]
  11. MUCINEX [Concomitant]

REACTIONS (8)
  - Hip fracture [Not Recovered/Not Resolved]
  - Wound infection staphylococcal [Not Recovered/Not Resolved]
  - Gallbladder disorder [Not Recovered/Not Resolved]
  - Fluid retention [Not Recovered/Not Resolved]
  - Hypertension [Not Recovered/Not Resolved]
  - Osteoporosis [Not Recovered/Not Resolved]
  - Chronic obstructive pulmonary disease [Not Recovered/Not Resolved]
  - Weight decreased [Unknown]
